FAERS Safety Report 18551872 (Version 2)
Quarter: 2020Q4

REPORT INFORMATION
  Report Type: Report from Study
  Country: None (occurrence: ES)
  Receive Date: 20201126
  Receipt Date: 20201130
  Transmission Date: 20210114
  Serious: Yes (Hospitalization, Other)
  Sender: FDA-Public Use
  Company Number: ES-ABBVIE-20K-144-3654129-00

PATIENT
  Age: 83 Year
  Sex: Female
  Weight: 49.5 kg

DRUGS (4)
  1. OMEPRAZOL [Concomitant]
     Active Substance: OMEPRAZOLE
     Indication: PRODUCT USED FOR UNKNOWN INDICATION
  2. DUODOPA [Suspect]
     Active Substance: CARBIDOPA\LEVODOPA
     Indication: PARKINSON^S DISEASE
     Route: 050
     Dates: start: 20201111
  3. DUODOPA [Suspect]
     Active Substance: CARBIDOPA\LEVODOPA
  4. TARGIN [Concomitant]
     Active Substance: NALOXONE HYDROCHLORIDE\OXYCODONE HYDROCHLORIDE
     Indication: PRODUCT USED FOR UNKNOWN INDICATION

REACTIONS (5)
  - Pain [Recovered/Resolved]
  - Pneumoperitoneum [Recovered/Resolved]
  - Secretion discharge [Unknown]
  - Gastrointestinal procedural complication [Unknown]
  - Discouragement [Unknown]

NARRATIVE: CASE EVENT DATE: 202011
